FAERS Safety Report 6321782-8 (Version None)
Quarter: 2009Q3

REPORT INFORMATION
  Report Type: 
  Country: None (occurrence: None)
  Receive Date: 20090824
  Receipt Date: 20090819
  Transmission Date: 20100115
  Serious: Yes (Life-Threatening)
  Sender: FDA-Public Use
  Company Number: US-BRISTOL-MYERS SQUIBB COMPANY-14687289

PATIENT
  Age: 65 Year
  Sex: Male

DRUGS (7)
  1. CISPLATIN [Suspect]
     Indication: BLADDER CANCER
     Dosage: STARTD28APR09. 23JUN09:REDUCED 50MG/M2(C3D1);30JUN09(CYC3DAY8);07JUL09(CYC3DAY15);21JUL09(CYC4DAY1)
     Route: 042
     Dates: start: 20090428, end: 20090526
  2. GEMCITABINE [Suspect]
     Indication: BLADDER CANCER
     Dosage: START:28APR09;12MAY09 DOSE REDUCED TO 75%;ON DAYS 1,8,15 23JUN09:RED800MG/M2(C3D1);30JUN09(C3D8)
     Route: 042
     Dates: start: 20090428
  3. DILANTIN [Concomitant]
     Indication: CONVULSION
     Route: 065
  4. PHENOBARBITAL [Concomitant]
     Indication: CONVULSION
     Route: 065
  5. LORAZEPAM [Concomitant]
     Route: 065
  6. ALEVE [Concomitant]
     Route: 065
  7. COMPAZINE [Concomitant]
     Route: 065

REACTIONS (1)
  - PULMONARY EMBOLISM [None]
